FAERS Safety Report 17205287 (Version 2)
Quarter: 2020Q1

REPORT INFORMATION
  Report Type: Report from Study
  Country: US (occurrence: US)
  Receive Date: 20191227
  Receipt Date: 20200120
  Transmission Date: 20200409
  Serious: Yes (Other)
  Sender: FDA-Public Use
  Company Number: US-EMD SERONO-9136457

PATIENT
  Sex: Female

DRUGS (1)
  1. REBIF [Suspect]
     Active Substance: INTERFERON BETA-1A
     Indication: PRODUCT USED FOR UNKNOWN INDICATION
     Route: 058
     Dates: start: 20080929, end: 20191126

REACTIONS (13)
  - Gastrointestinal ulcer haemorrhage [Unknown]
  - Injection site erythema [Unknown]
  - Hypoaesthesia [Unknown]
  - Diarrhoea [Not Recovered/Not Resolved]
  - Vitreous floaters [Not Recovered/Not Resolved]
  - Product administration interrupted [Unknown]
  - Cholecystectomy [Unknown]
  - Spinal osteoarthritis [Unknown]
  - Inability to afford medication [Unknown]
  - Drug dose titration not performed [Unknown]
  - Insurance issue [Unknown]
  - Malaise [Unknown]
  - Arthritis [Unknown]

NARRATIVE: CASE EVENT DATE: 2017
